FAERS Safety Report 16800487 (Version 4)
Quarter: 2019Q4

REPORT INFORMATION
  Report Type: Report from Study
  Country: US (occurrence: US)
  Receive Date: 20190912
  Receipt Date: 20191016
  Transmission Date: 20200122
  Serious: Yes (Hospitalization, Other)
  Sender: FDA-Public Use
  Company Number: US-PFIZER INC-2019343725

PATIENT
  Age: 57 Year
  Sex: Female

DRUGS (5)
  1. FASLODEX [Suspect]
     Active Substance: FULVESTRANT
     Indication: BREAST CANCER FEMALE
     Dosage: 500 MG, UNK (Q EVERY 28 DAYS)
     Route: 030
     Dates: start: 201905
  2. IBRANCE [Suspect]
     Active Substance: PALBOCICLIB
     Indication: BREAST CANCER FEMALE
     Dosage: 125 MG, CYCLIC (DAILY 3 WEEKS ON ONE WEEKS OFF)
     Route: 048
     Dates: start: 20190509
  3. FASLODEX [Suspect]
     Active Substance: FULVESTRANT
     Indication: METASTASES TO BONE
  4. IBRANCE [Suspect]
     Active Substance: PALBOCICLIB
     Indication: METASTASES TO BONE
     Dosage: 125 MG, CYCLIC (DAILY, 21 DAYS ON, THEN 7 DAYS OFF)
     Route: 048
     Dates: start: 20190604, end: 20190828
  5. REGLAN [Suspect]
     Active Substance: METOCLOPRAMIDE HYDROCHLORIDE
     Dosage: UNK

REACTIONS (10)
  - Feeding disorder [Recovering/Resolving]
  - Loss of consciousness [Unknown]
  - Back injury [Unknown]
  - Immobile [Unknown]
  - Spinal fracture [Unknown]
  - Stomatitis [Recovering/Resolving]
  - Oxygen saturation decreased [Unknown]
  - Respiratory failure [Recovered/Resolved]
  - Constipation [Unknown]
  - Pain in extremity [Unknown]

NARRATIVE: CASE EVENT DATE: 2019
